FAERS Safety Report 6043222-9 (Version None)
Quarter: 2009Q1

REPORT INFORMATION
  Report Type: 
  Country: None (occurrence: None)
  Receive Date: 20090119
  Receipt Date: 20090109
  Transmission Date: 20090719
  Serious: Yes (Other)
  Sender: FDA-Public Use
  Company Number: US-ELI_LILLY_AND_COMPANY-US200812002402

PATIENT
  Sex: Male
  Weight: 112.47 kg

DRUGS (7)
  1. BYETTA [Suspect]
     Dosage: 10 UG, UNKNOWN
     Route: 065
     Dates: start: 20080201, end: 20080630
  2. FUROSEMIDE [Concomitant]
     Dosage: UNK, UNKNOWN
     Route: 065
  3. GLYBURIDE [Concomitant]
     Dosage: UNK, UNKNOWN
     Route: 065
  4. LISINOPRIL [Concomitant]
     Dosage: UNK, UNKNOWN
     Route: 065
  5. METFORMIN [Concomitant]
     Dosage: UNK, UNKNOWN
     Route: 065
  6. PIOGLITAZONE [Concomitant]
     Dosage: UNK, UNKNOWN
     Route: 065
  7. GEMFIBROZIL [Concomitant]
     Dosage: UNK, UNKNOWN
     Route: 065

REACTIONS (1)
  - PANCREATITIS [None]
